FAERS Safety Report 8190828-7 (Version None)
Quarter: 2012Q1

REPORT INFORMATION
  Report Type: 
  Country: None (occurrence: None)
  Receive Date: 20120221
  Receipt Date: 20111027
  Transmission Date: 20120608
  Serious: No
  Sender: FDA-Public Use
  Company Number: 1000025022

PATIENT
  Age: 62 Year
  Sex: Male

DRUGS (6)
  1. KLONOPIN [Concomitant]
  2. SEROQUEL(QUETIAPINE FUMARATE) (QUETIAPINE FUMARATE) [Concomitant]
  3. VIIBRYD [Suspect]
     Indication: DEPRESSION
     Dosage: SEE IMAGE
     Route: 048
     Dates: start: 20110901, end: 20110101
  4. VIIBRYD [Suspect]
     Indication: DEPRESSION
     Dosage: SEE IMAGE
     Route: 048
     Dates: start: 20110101, end: 20111001
  5. VIIBRYD [Suspect]
     Indication: DEPRESSION
     Dosage: SEE IMAGE
     Route: 048
     Dates: start: 20111001, end: 20111001
  6. VIIBRYD [Suspect]
     Indication: DEPRESSION
     Dosage: SEE IMAGE
     Route: 048
     Dates: start: 20111001

REACTIONS (2)
  - DRUG INEFFECTIVE [None]
  - INTENTIONAL OVERDOSE [None]
